FAERS Safety Report 15220843 (Version 2)
Quarter: 2019Q3

REPORT INFORMATION
  Report Type: Spontaneous
  Country: DE (occurrence: DE)
  Receive Date: 20180731
  Receipt Date: 20190719
  Transmission Date: 20191004
  Serious: Yes (Hospitalization, Other)
  Sender: FDA-Public Use
  Company Number: PHHY2018DE052129

PATIENT
  Age: 60 Year
  Sex: Female

DRUGS (7)
  1. ACETYLSALICYLIC ACID [Interacting]
     Active Substance: ASPIRIN
     Indication: VASCULAR STENT THROMBOSIS
     Dosage: 100 MG, QD
     Route: 065
  2. IBUPROFEN. [Suspect]
     Active Substance: IBUPROFEN
     Indication: PAIN
     Dosage: (600 MG, PRN) UNK
     Route: 065
  3. APIXABAN [Interacting]
     Active Substance: APIXABAN
     Indication: ANTICOAGULANT THERAPY
     Dosage: 10 MG, QD (5 MG BID)
     Route: 048
  4. VALSARTAN. [Concomitant]
     Active Substance: VALSARTAN
     Indication: HYPERTENSION
     Dosage: UNK
     Route: 065
  5. ATORVASTATIN [Concomitant]
     Active Substance: ATORVASTATIN
     Indication: PRODUCT USED FOR UNKNOWN INDICATION
     Dosage: UNK
     Route: 065
  6. APIXABAN [Interacting]
     Active Substance: APIXABAN
     Indication: VASCULAR STENT THROMBOSIS
  7. PHENPROCOUMON [Interacting]
     Active Substance: PHENPROCOUMON
     Indication: VASCULAR STENT THROMBOSIS
     Dosage: UNK UNK, QD
     Route: 048

REACTIONS (10)
  - Sinus tachycardia [Unknown]
  - Anaemia [Recovered/Resolved]
  - Asthenia [Unknown]
  - Large intestinal haemorrhage [Unknown]
  - Contraindicated product administered [Unknown]
  - Rectal haemorrhage [Recovered/Resolved]
  - Labelled drug-drug interaction medication error [Unknown]
  - Off label use [Unknown]
  - Lower gastrointestinal haemorrhage [Unknown]
  - Intentional product use issue [Unknown]
